FAERS Safety Report 10681491 (Version 1)
Quarter: 2014Q4

REPORT INFORMATION
  Report Type: Report from Study
  Country: GB (occurrence: None)
  Receive Date: 20141224
  Receipt Date: 20141224
  Transmission Date: 20150529
  Serious: Yes (Death)
  Sender: FDA-Public Use
  Company Number: AMAG201400485

PATIENT

DRUGS (2)
  1. RIENSO (FERUMOXYTOL) INJECTION [Suspect]
     Active Substance: FERUMOXYTOL
     Indication: IMAGING PROCEDURE
     Route: 042
     Dates: start: 20130806, end: 20130806
  2. BUSCOPAN (HYOSCINE BUTYLBROMDE) [Concomitant]

REACTIONS (5)
  - Lung cancer metastatic [None]
  - Malignant neoplasm progression [None]
  - Weight decreased [None]
  - Metastases to liver [None]
  - Dysphagia [None]

NARRATIVE: CASE EVENT DATE: 20140922
